FAERS Safety Report 10239226 (Version 1)
Quarter: 2014Q2

REPORT INFORMATION
  Report Type: Spontaneous
  Country: US (occurrence: US)
  Receive Date: 20140616
  Receipt Date: 20140616
  Transmission Date: 20141212
  Serious: No
  Sender: FDA-Public Use
  Company Number: US-PFIZER INC-2014161003

PATIENT
  Age: 80 Year
  Sex: Male

DRUGS (2)
  1. INLYTA [Suspect]
     Indication: RENAL CELL CARCINOMA
     Dosage: 5 MG, 2X/DAY (1 TABLET OF 5 MG EVERY 12 HOURS)
     Route: 048
     Dates: start: 20140508
  2. INLYTA [Suspect]
     Dosage: 4 MG, 2X/DAY (FOUR TABLETS OF 1 MG BID)
     Route: 048

REACTIONS (1)
  - Fatigue [Unknown]
